FAERS Safety Report 22198953 (Version 2)
Quarter: 2023Q2

REPORT INFORMATION
  Report Type: Report from Study
  Country: FR (occurrence: FR)
  Receive Date: 20230411
  Receipt Date: 20230606
  Transmission Date: 20230721
  Serious: Yes (Hospitalization)
  Sender: FDA-Public Use
  Company Number: FR-SEATTLE GENETICS-2023SGN03546

PATIENT
  Age: 47 Year
  Sex: Female

DRUGS (6)
  1. TUCATINIB [Suspect]
     Active Substance: TUCATINIB
     Indication: Breast cancer metastatic
     Dosage: UNK
     Route: 048
     Dates: start: 20220901
  2. TUCATINIB [Suspect]
     Active Substance: TUCATINIB
     Dosage: 500 MG, QD AT C3D1
     Route: 048
  3. TUCATINIB [Suspect]
     Active Substance: TUCATINIB
     Dosage: 400 MG QD AT C8D1
     Route: 048
  4. TUCATINIB [Suspect]
     Active Substance: TUCATINIB
     Dosage: 300 MG, QD
     Route: 048
     Dates: start: 20230224
  5. TRASTUZUMAB [Suspect]
     Active Substance: TRASTUZUMAB
     Indication: Breast cancer metastatic
     Dosage: 321 MG EVERY CYCLE
     Route: 042
     Dates: start: 20220901
  6. PERTUZUMAB [Suspect]
     Active Substance: PERTUZUMAB
     Indication: Breast cancer metastatic
     Dosage: 420 MG EVERY CYCLE
     Route: 042
     Dates: start: 20220901

REACTIONS (1)
  - Vomiting [Recovered/Resolved with Sequelae]

NARRATIVE: CASE EVENT DATE: 20230216
